FAERS Safety Report 4746596-1 (Version None)
Quarter: 2005Q3

REPORT INFORMATION
  Report Type: 
  Country: None (occurrence: None)
  Receive Date: 20050815
  Receipt Date: 20050805
  Transmission Date: 20060218
  Serious: Yes (Hospitalization)
  Sender: FDA-Public Use
  Company Number: 23180

PATIENT
  Sex: Male
  Weight: 81.6475 kg

DRUGS (2)
  1. NIASPAN [Suspect]
     Indication: BLOOD CHOLESTEROL INCREASED
     Dosage: 1500 MG QHS PO
     Route: 048
  2. ASPIRIN [Suspect]
     Indication: FLUSHING
     Dosage: 81 MG QHS PO
     Route: 048

REACTIONS (1)
  - RECTAL HAEMORRHAGE [None]
